FAERS Safety Report 8465174-4 (Version None)
Quarter: 2012Q2

REPORT INFORMATION
  Report Type: 
  Country: None (occurrence: None)
  Receive Date: 20120618
  Receipt Date: 20120602
  Transmission Date: 20120825
  Serious: Yes (Hospitalization)
  Sender: FDA-Public Use
  Company Number: 2012AP001723

PATIENT
  Age: 18 Year
  Sex: Female

DRUGS (3)
  1. AMLODIPINE BESYLATE [Suspect]
     Indication: PRODUCT USED FOR UNKNOWN INDICATION
  2. LISINOPRIL [Suspect]
     Indication: PRODUCT USED FOR UNKNOWN INDICATION
  3. LIPID EMULSION [Suspect]
     Indication: CARDIOTOXICITY

REACTIONS (3)
  - SHOCK [None]
  - ACUTE LUNG INJURY [None]
  - CARDIOTOXICITY [None]
